FAERS Safety Report 7741772-8 (Version None)
Quarter: 2011Q3

REPORT INFORMATION
  Report Type: 
  Country: None (occurrence: None)
  Receive Date: 20110912
  Receipt Date: 20110831
  Transmission Date: 20111222
  Serious: Yes (Other)
  Sender: FDA-Public Use
  Company Number: BR-BIOGENIDEC-2011BI034038

PATIENT
  Age: 24 Year
  Sex: Male

DRUGS (3)
  1. IMUNEN (AZATHIPRINE) [Concomitant]
     Indication: PRODUCT USED FOR UNKNOWN INDICATION
  2. AVONEX [Suspect]
     Indication: MULTIPLE SCLEROSIS
     Route: 030
     Dates: end: 20110701
  3. MANTIDAN (AMANTHADINE) [Concomitant]
     Indication: PRODUCT USED FOR UNKNOWN INDICATION

REACTIONS (3)
  - DEPRESSION [None]
  - DYSURIA [None]
  - ACUTE DISSEMINATED ENCEPHALOMYELITIS [None]
